FAERS Safety Report 19321562 (Version 1)
Quarter: 2021Q2

REPORT INFORMATION
  Report Type: Spontaneous
  Country: JP (occurrence: JP)
  Receive Date: 20210528
  Receipt Date: 20210528
  Transmission Date: 20210717
  Serious: Yes (Hospitalization, Other)
  Sender: FDA-Public Use
  Company Number: JP-NOVOPROD-814977

PATIENT
  Age: 34 Year
  Sex: Female
  Weight: 61.3 kg

DRUGS (7)
  1. LEVEMIR [Suspect]
     Active Substance: INSULIN DETEMIR
     Dosage: UNK (INSULIN WAS INCREASED )
     Route: 058
  2. NOVORAPID [Suspect]
     Active Substance: INSULIN ASPART
     Dosage: UNK (INSULIN WAS INCREASED )
     Route: 058
  3. NIFEDIPINE. [Concomitant]
     Active Substance: NIFEDIPINE
     Indication: HYPERTENSION
     Dosage: UNK
     Route: 065
  4. LEVEMIR [Suspect]
     Active Substance: INSULIN DETEMIR
     Indication: TYPE 1 DIABETES MELLITUS
     Dosage: 22 IU, QD (BEFORE BEDTIME)
     Route: 058
  5. NOVORAPID [Suspect]
     Active Substance: INSULIN ASPART
     Dosage: UNK (ADJUSTMENT OF INSULIN DOSE)
     Route: 058
  6. NOVORAPID [Suspect]
     Active Substance: INSULIN ASPART
     Indication: TYPE 1 DIABETES MELLITUS
     Dosage: 4 IU, TID (4?4?4)
     Route: 058
  7. LEVEMIR [Suspect]
     Active Substance: INSULIN DETEMIR
     Dosage: UNK (ADJUSTMENT OF INSULIN DOSE)
     Route: 058

REACTIONS (5)
  - Hyperemesis gravidarum [Unknown]
  - Nonreassuring foetal heart rate pattern [Unknown]
  - Diabetic nephropathy [Recovering/Resolving]
  - Diabetic retinopathy [Unknown]
  - Maternal exposure during pregnancy [Recovered/Resolved]
